FAERS Safety Report 15771695 (Version 1)
Quarter: 2018Q4

REPORT INFORMATION
  Report Type: Spontaneous
  Country: US (occurrence: US)
  Receive Date: 20181207
  Receipt Date: 20181207
  Transmission Date: 20190205
  Serious: No
  Sender: FDA-Public Use
  Company Number: None

PATIENT
  Age: 37 Year
  Sex: Female

DRUGS (1)
  1. TALTZ [Suspect]
     Active Substance: IXEKIZUMAB
     Indication: PSORIASIS
     Dosage: ?          OTHER STRENGTH:80MG/ML 1ML;OTHER FREQUENCY:EVERY 4 WKS AS DIR;?
     Route: 058
     Dates: start: 201808

REACTIONS (1)
  - Alopecia [None]
